FAERS Safety Report 24755181 (Version 1)
Quarter: 2024Q4

REPORT INFORMATION
  Report Type: Spontaneous
  Country: US (occurrence: None)
  Receive Date: 20241218
  Receipt Date: 20241218
  Transmission Date: 20250114
  Serious: No
  Sender: Public
  Company Number: None

PATIENT
  Age: 65 Year
  Sex: Male
  Weight: 136 kg

DRUGS (1)
  1. TIRZEPATIDE [Suspect]
     Active Substance: TIRZEPATIDE
     Indication: Diabetes mellitus
     Dosage: OTHER FREQUENCY : QWEEK;?
     Route: 058
     Dates: start: 20240731, end: 20240920

REACTIONS (4)
  - Diarrhoea [None]
  - Gastrooesophageal reflux disease [None]
  - Vomiting [None]
  - Drug intolerance [None]

NARRATIVE: CASE EVENT DATE: 20240920
